FAERS Safety Report 17076299 (Version 1)
Quarter: 2019Q4

REPORT INFORMATION
  Report Type: Spontaneous
  Country: FI (occurrence: FI)
  Receive Date: 20191126
  Receipt Date: 20191126
  Transmission Date: 20200122
  Serious: Yes (Other)
  Sender: FDA-Public Use
  Company Number: FI-SA-2019SA324037

PATIENT
  Age: 65 Year
  Sex: Female

DRUGS (4)
  1. ATENOLOL. [Concomitant]
     Active Substance: ATENOLOL
     Indication: ESSENTIAL HYPERTENSION
     Dosage: UNK UNK, UNK
     Route: 065
  2. INDAPAMIDE. [Suspect]
     Active Substance: INDAPAMIDE
     Indication: ESSENTIAL HYPERTENSION
     Dosage: 2.5 MG, QD
     Route: 065
  3. DOTHIEPIN HYDROCHLORIDE [Concomitant]
     Active Substance: DOTHIEPIN HYDROCHLORIDE
     Dosage: 25 MG, QD
     Route: 065
  4. TRIAZOLAM. [Concomitant]
     Active Substance: TRIAZOLAM
     Indication: ESSENTIAL HYPERTENSION
     Dosage: 0.25 MG, QD
     Route: 065

REACTIONS (9)
  - Confusional state [Recovered/Resolved]
  - Skin exfoliation [Recovered/Resolved]
  - Toxic epidermal necrolysis [Recovered/Resolved]
  - Acute kidney injury [Recovered/Resolved]
  - Rash pruritic [Recovered/Resolved]
  - Pyrexia [Recovering/Resolving]
  - Hypotension [Unknown]
  - Nikolsky^s sign [Recovered/Resolved]
  - Disseminated intravascular coagulation [Recovered/Resolved]
